FAERS Safety Report 22353920 (Version 1)
Quarter: 2023Q2

REPORT INFORMATION
  Report Type: Spontaneous
  Country: FR (occurrence: FR)
  Receive Date: 20230523
  Receipt Date: 20230523
  Transmission Date: 20230721
  Serious: Yes (Other)
  Sender: FDA-Public Use
  Company Number: None

PATIENT
  Age: 71 Year
  Sex: Female
  Weight: 73 kg

DRUGS (1)
  1. FULVESTRANT [Suspect]
     Active Substance: FULVESTRANT
     Indication: Breast cancer metastatic
     Dosage: 125 MG (125 MG AUTO TOTAL)
     Route: 030
     Dates: start: 20230331, end: 20230331

REACTIONS (2)
  - Skin necrosis [Not Recovered/Not Resolved]
  - Injection related reaction [Not Recovered/Not Resolved]

NARRATIVE: CASE EVENT DATE: 20230331
